FAERS Safety Report 6524412-5 (Version None)
Quarter: 2010Q1

REPORT INFORMATION
  Report Type: 
  Country: None (occurrence: None)
  Receive Date: 20100102
  Receipt Date: 20091222
  Transmission Date: 20100710
  Serious: Yes (Other)
  Sender: FDA-Public Use
  Company Number: PHHY2009GB57811

PATIENT
  Sex: Male

DRUGS (5)
  1. CLOZARIL [Suspect]
     Indication: SCHIZOPHRENIA
     Dosage: UNK
     Dates: start: 19910422
  2. PICOLAX [Concomitant]
     Dosage: UNK
  3. MIDAZOLAM HCL [Concomitant]
     Dosage: UNK
  4. FENTANYL-100 [Concomitant]
     Dosage: UNK
  5. BUSCOPAN [Concomitant]
     Dosage: UNK

REACTIONS (1)
  - PAIN [None]
